FAERS Safety Report 11738452 (Version 2)
Quarter: 2015Q4

REPORT INFORMATION
  Report Type: Report from Study
  Country: ES (occurrence: ES)
  Receive Date: 20151113
  Receipt Date: 20151119
  Transmission Date: 20160304
  Serious: Yes (Hospitalization, Other)
  Sender: FDA-Public Use
  Company Number: ES-BAXTER-2015BAX060373

PATIENT
  Age: 81 Year
  Sex: Male

DRUGS (12)
  1. EZETIMIBA [Concomitant]
     Indication: DYSLIPIDAEMIA
     Dosage: 0-0-1
     Route: 048
     Dates: start: 2013
  2. GENOXAL [Suspect]
     Active Substance: CYCLOPHOSPHAMIDE
     Indication: PLASMA CELL MYELOMA
     Dosage: 800 MG
     Route: 042
     Dates: start: 20141016, end: 20141016
  3. ERTAPENEM [Suspect]
     Active Substance: ERTAPENEM
     Indication: PLASMA CELL MYELOMA
     Dosage: 1 GR/24 HOURS
     Route: 042
     Dates: start: 20141001, end: 20141010
  4. OMEPRAZOL [Concomitant]
     Active Substance: OMEPRAZOLE
     Indication: PROPHYLAXIS AGAINST GASTROINTESTINAL ULCER
     Dosage: 1 CP
     Route: 048
     Dates: start: 2013
  5. ALOPURINOL [Concomitant]
     Active Substance: ALLOPURINOL
     Indication: HYPERURICAEMIA
     Dosage: 1-0-0
     Route: 048
     Dates: start: 2013
  6. FASTURTEC [Suspect]
     Active Substance: RASBURICASE
     Indication: PLASMA CELL MYELOMA
     Dosage: 10 AMP
     Route: 042
     Dates: start: 20141016, end: 20141016
  7. ADOLONTA [Concomitant]
     Active Substance: TRAMADOL HYDROCHLORIDE
     Indication: BACK PAIN
     Dosage: 1-1-1
     Route: 048
     Dates: start: 20141031
  8. PREDNISONA [Concomitant]
     Active Substance: PREDNISONE
     Indication: PLASMA CELL MYELOMA
     Dosage: 1-0-0 DAY APART
     Route: 048
     Dates: start: 2013
  9. PRANDIN [Concomitant]
     Active Substance: REPAGLINIDE
     Indication: TYPE 2 DIABETES MELLITUS
     Dosage: 0-1-1
     Route: 048
     Dates: start: 1999
  10. LEXATIN [Concomitant]
     Active Substance: BROMAZEPAM
     Indication: INSOMNIA
     Dosage: 0-0-1
     Route: 048
     Dates: start: 2013
  11. SUMIAL [Concomitant]
     Active Substance: PROPRANOLOL HYDROCHLORIDE
     Indication: HYPERTENSION
     Dosage: 0-0-1
     Route: 048
     Dates: start: 201406, end: 20141102
  12. SEGURIL [Concomitant]
     Active Substance: FUROSEMIDE
     Indication: HYPERTENSION
     Dosage: 1-0-0
     Route: 048
     Dates: start: 201406, end: 20141102

REACTIONS (6)
  - Agitation [Unknown]
  - Pain [Unknown]
  - Acute kidney injury [Recovered/Resolved]
  - Disorientation [Unknown]
  - Disease progression [Unknown]
  - Plasma cell myeloma [Unknown]

NARRATIVE: CASE EVENT DATE: 20141016
